FAERS Safety Report 22302142 (Version 1)
Quarter: 2023Q2

REPORT INFORMATION
  Report Type: Spontaneous
  Country: US (occurrence: US)
  Receive Date: 20230510
  Receipt Date: 20230510
  Transmission Date: 20230721
  Serious: No
  Sender: FDA-Public Use
  Company Number: US-AMGEN-USASP2023078826

PATIENT
  Sex: Male

DRUGS (1)
  1. REPATHA [Suspect]
     Active Substance: EVOLOCUMAB
     Indication: Hyperlipidaemia
     Dosage: 140 MILLIGRAM PER MILLILITER, EVERY TWO WEEKS
     Route: 058
     Dates: start: 2020

REACTIONS (3)
  - Incorrect disposal of product [Unknown]
  - Wrong technique in product usage process [Unknown]
  - Device difficult to use [Unknown]
